FAERS Safety Report 8986310 (Version 1)
Quarter: 2012Q4

REPORT INFORMATION
  Report Type: Spontaneous
  Country: US (occurrence: None)
  Receive Date: 20121219
  Receipt Date: 20121219
  Transmission Date: 20130627
  Serious: Yes (Death)
  Sender: FDA-Public Use
  Company Number: None

PATIENT
  Sex: Male

DRUGS (1)
  1. SENSIPAR [Suspect]
     Indication: RENAL DISEASE
     Dosage: 30 mg QD PO
     Route: 048
     Dates: start: 201208, end: 201211

REACTIONS (2)
  - Cardiovascular disorder [None]
  - Renal disorder [None]
